FAERS Safety Report 10220584 (Version 2)
Quarter: 2014Q2

REPORT INFORMATION
  Report Type: Spontaneous
  Country: DE (occurrence: DE)
  Receive Date: 20140606
  Receipt Date: 20140619
  Transmission Date: 20141212
  Serious: Yes (Hospitalization)
  Sender: FDA-Public Use
  Company Number: DE-AMGEN-DEUSP2014041044

PATIENT
  Sex: Female

DRUGS (15)
  1. NEULASTA [Suspect]
     Indication: B-CELL LYMPHOMA
     Dosage: 6 MG, ONE TIME A DAY FOR ONE DAY
     Route: 058
     Dates: start: 20140124, end: 20140124
  2. RITUXIMAB [Suspect]
     Indication: B-CELL LYMPHOMA
     Dosage: 660 MG, ONE TIME A DAY FOR ONE DAY
     Route: 042
     Dates: start: 20140121, end: 20140121
  3. CYCLOPHOSPHAMIDE [Suspect]
     Indication: B-CELL LYMPHOMA
     Dosage: 1320 MG, ONE TIME A DAY FOR ONE DAY
     Route: 042
     Dates: start: 20140121, end: 20140121
  4. DOXORUBICIN [Suspect]
     Indication: B-CELL LYMPHOMA
     Dosage: 88 MG, ONE TIME A DAY FOR ONE DAY
     Route: 042
     Dates: start: 20140121, end: 20140121
  5. VINCRISTINE [Suspect]
     Indication: B-CELL LYMPHOMA
     Dosage: 2 MG, ONE TIME A DAY FOR ONE DAY
     Route: 042
     Dates: start: 20140121, end: 20140121
  6. PREDNISOLONE [Concomitant]
     Indication: B-CELL LYMPHOMA
     Dosage: 100 MG, ONE TIME A DAY FOR FIVE DAYS
     Route: 048
     Dates: start: 20140121, end: 20140125
  7. TRIMETHOPRIM SULFAMETHOXAZOLE [Concomitant]
     Indication: B-CELL LYMPHOMA
     Dosage: 960 MG, 4 TIMES A WEEK
     Route: 048
     Dates: start: 201310
  8. BISOPROLOL HEMIFUMARATE [Concomitant]
     Indication: HYPERTENSION
     Dosage: 2.5 MG, ONE TIME A DAY
     Route: 048
     Dates: start: 2012
  9. NALOXONE HCL W/OXYCODONE HCL [Concomitant]
     Indication: PAIN
     Dosage: 20 MG, TWO TIMES A DAY
     Route: 048
     Dates: start: 201310
  10. METAMIZOLE SODIUM [Concomitant]
     Indication: PAIN
     Dosage: 500 MG, 4 TIMES A DAY FOR 2 DAYS
     Route: 048
     Dates: start: 20140204, end: 20140205
  11. QUETIAPINE [Concomitant]
     Indication: DEPRESSION
     Dosage: 150 MG, ONE TIME A DAY
     Route: 048
     Dates: start: 201310
  12. PANTOPRAZOLE SODIUM [Concomitant]
     Indication: PROPHYLAXIS
     Dosage: 40 MG, ONE TIME A DAY
     Route: 048
     Dates: start: 201310
  13. LEVOTHYROXINE SODIUM [Concomitant]
     Indication: THYROID HORMONE REPLACEMENT THERAPY
     Dosage: 100 MUG, ONE TIME A DAY
     Route: 048
     Dates: start: 2012
  14. LEVODOPA-CARBIDOPA [Concomitant]
     Indication: PARKINSON^S DISEASE
     Dosage: 62.5 MG, 3 TIMES A DAY
     Route: 048
     Dates: start: 2012
  15. DONEPEZIL HYDROCHLORIDE [Concomitant]
     Indication: ANXIETY
     Dosage: 10 MG, ONE TIME A DAY
     Route: 048
     Dates: start: 201310

REACTIONS (2)
  - Thrombocytopenia [Recovered/Resolved]
  - Anaemia [Recovered/Resolved]
